FAERS Safety Report 7560383-0 (Version None)
Quarter: 2011Q2

REPORT INFORMATION
  Report Type: 
  Country: None (occurrence: None)
  Receive Date: 20110621
  Receipt Date: 20110610
  Transmission Date: 20111010
  Serious: Yes (Other)
  Sender: FDA-Public Use
  Company Number: JP-JNJFOC-20110607949

PATIENT
  Age: 93 Year
  Sex: Female

DRUGS (2)
  1. LEVOFLOXACIN [Suspect]
     Indication: PHARYNGITIS
     Route: 048
     Dates: start: 20110524, end: 20110526
  2. SALICYLAMIDE/ACETAMIN/CAFFEINE/PROMETHAZINE [Concomitant]
     Route: 065
     Dates: start: 20110524, end: 20110526

REACTIONS (3)
  - LOGORRHOEA [None]
  - DELIRIUM [None]
  - RHABDOMYOLYSIS [None]
